FAERS Safety Report 4338983-0 (Version None)
Quarter: 2004Q2

REPORT INFORMATION
  Report Type: 
  Country: None (occurrence: None)
  Receive Date: 20040409
  Receipt Date: 20040331
  Transmission Date: 20050107
  Serious: Yes (Hospitalization)
  Sender: FDA-Public Use
  Company Number: 03P-163-0234789-00

PATIENT
  Age: 71 Year
  Sex: Female

DRUGS (13)
  1. NORVIR [Suspect]
     Indication: HIV INFECTION
     Dosage: PER ORAL
     Route: 048
     Dates: start: 20030910
  2. TIPRANAVIR [Concomitant]
  3. ESTRADIOL [Concomitant]
  4. GABAPENTIN [Concomitant]
  5. BACTRIM [Concomitant]
  6. MAGACE [Concomitant]
  7. SERTRALINE HYDROCHLORIDE [Concomitant]
  8. HYDROXYZINE HYDROCHLORIDE [Concomitant]
  9. LORAZEPAM [Concomitant]
  10. TRIMETHOPRIM SULFATE [Concomitant]
  11. METOPROLOL [Concomitant]
  12. COMBIVENT [Concomitant]
  13. FLUTICASONE PROPIONATE [Concomitant]

REACTIONS (16)
  - ANGIONEUROTIC OEDEMA [None]
  - BLOOD POTASSIUM DECREASED [None]
  - CARDIAC FAILURE CONGESTIVE [None]
  - CHEST PAIN [None]
  - CHILLS [None]
  - CHRONIC OBSTRUCTIVE AIRWAYS DISEASE EXACERBATED [None]
  - DISCOMFORT [None]
  - DYSPHASIA [None]
  - HOARSENESS [None]
  - HYPERHIDROSIS [None]
  - NAUSEA [None]
  - ORAL CANDIDIASIS [None]
  - OROPHARYNGEAL SWELLING [None]
  - PNEUMONIA [None]
  - SINUS ARRHYTHMIA [None]
  - THROAT TIGHTNESS [None]
